FAERS Safety Report 12623283 (Version 1)
Quarter: 2016Q3

REPORT INFORMATION
  Report Type: Spontaneous
  Country: HU (occurrence: HU)
  Receive Date: 20160804
  Receipt Date: 20160804
  Transmission Date: 20161109
  Serious: Yes (Death, Other)
  Sender: FDA-Public Use
  Company Number: HU-ELI_LILLY_AND_COMPANY-HU201608002158

PATIENT
  Age: 54 Year
  Sex: Female

DRUGS (4)
  1. GEMCITABINE HYDROCHLORIDE. [Suspect]
     Active Substance: GEMCITABINE HYDROCHLORIDE
     Dosage: UNK, CYCLICAL
     Route: 065
  2. GEMCITABINE HYDROCHLORIDE. [Suspect]
     Active Substance: GEMCITABINE HYDROCHLORIDE
     Indication: RENAL CANCER METASTATIC
     Dosage: 100 MG/M2, CYCLICAL
     Route: 065
  3. CISPLATINE [Suspect]
     Active Substance: CISPLATIN
     Indication: RENAL CANCER METASTATIC
     Dosage: 70 MG/M2, CYCLICAL
     Route: 065
  4. CISPLATINE [Suspect]
     Active Substance: CISPLATIN
     Dosage: UNK, CYCLICAL
     Route: 065

REACTIONS (5)
  - General physical health deterioration [Unknown]
  - Malignant neoplasm progression [Fatal]
  - Deep vein thrombosis [Recovered/Resolved]
  - Cachexia [Unknown]
  - Off label use [Recovered/Resolved]
